FAERS Safety Report 5044151-X (Version None)
Quarter: 2006Q2

REPORT INFORMATION
  Report Type: 
  Country: None (occurrence: None)
  Receive Date: 20060601
  Receipt Date: 20060428
  Transmission Date: 20061013
  Serious: No
  Sender: FDA-Public Use
  Company Number: US200603003384

PATIENT
  Age: 28 Year
  Sex: Female

DRUGS (4)
  1. CYMBALTA [Suspect]
     Indication: MAJOR DEPRESSION
     Dosage: 60 MG, DAILY(1/D)
     Dates: start: 20060214, end: 20060306
  2. PROVIGIL [Concomitant]
  3. SINEQUAN [Concomitant]
  4. EFFEXOR XR [Concomitant]

REACTIONS (2)
  - BLOOD PRESSURE INCREASED [None]
  - OEDEMA [None]
